FAERS Safety Report 12225387 (Version 1)
Quarter: 2016Q1

REPORT INFORMATION
  Report Type: Spontaneous
  Country: US (occurrence: US)
  Receive Date: 20160331
  Receipt Date: 20160331
  Transmission Date: 20160526
  Serious: No
  Sender: FDA-Public Use
  Company Number: US-GLAXOSMITHKLINE-US2016043142

PATIENT
  Age: 53 Year
  Sex: Male

DRUGS (2)
  1. LAMOTRIGINE PROLONGED-RELEASE TABLET [Suspect]
     Active Substance: LAMOTRIGINE
     Indication: SEIZURE
     Dosage: UNK UNK, U
     Route: 048
  2. RED YEAST RICE SUPPLEMENT [Concomitant]

REACTIONS (4)
  - Product substitution issue [Recovered/Resolved]
  - Drug ineffective [Recovered/Resolved]
  - Speech disorder [Recovered/Resolved]
  - Jaw disorder [Recovered/Resolved]
